FAERS Safety Report 17002188 (Version 1)
Quarter: 2019Q4

REPORT INFORMATION
  Report Type: Spontaneous
  Country: US (occurrence: US)
  Receive Date: 20191106
  Receipt Date: 20191106
  Transmission Date: 20200122
  Serious: No
  Sender: FDA-Public Use
  Company Number: US-ROCHE-2237055

PATIENT
  Age: 33 Year
  Sex: Male

DRUGS (2)
  1. PULMOZYME [Suspect]
     Active Substance: DORNASE ALFA
     Indication: PURINE METABOLISM DISORDER
  2. PULMOZYME [Suspect]
     Active Substance: DORNASE ALFA
     Indication: ACQUIRED PYRIMIDINE METABOLISM DISORDER
     Dosage: 1 MG/ML AMPOULE REFRIGERATE
     Route: 055
     Dates: start: 201512

REACTIONS (4)
  - Off label use [Unknown]
  - No adverse event [Unknown]
  - Product dose omission [Unknown]
  - Intentional product use issue [Unknown]

NARRATIVE: CASE EVENT DATE: 20181226
